FAERS Safety Report 6340557-7 (Version None)
Quarter: 2009Q3

REPORT INFORMATION
  Report Type: 
  Country: None (occurrence: None)
  Receive Date: 20090902
  Receipt Date: 20090820
  Transmission Date: 20100115
  Serious: Yes (Other)
  Sender: FDA-Public Use
  Company Number: 2009AP000571

PATIENT
  Age: 53 Year
  Sex: Male

DRUGS (5)
  1. CARBAMAZEPINE [Suspect]
     Indication: EPILEPSY
  2. PHENYTOIN [Suspect]
     Indication: EPILEPSY
  3. OXCARBAZEPINE [Suspect]
     Indication: EPILEPSY
  4. LAMOTRIGINE [Concomitant]
  5. PHENOBARBITAL TAB [Concomitant]

REACTIONS (4)
  - DRUG HYPERSENSITIVITY [None]
  - IDIOSYNCRATIC DRUG REACTION [None]
  - PYREXIA [None]
  - RASH [None]
